FAERS Safety Report 5591835-0 (Version None)
Quarter: 2008Q1

REPORT INFORMATION
  Report Type: 
  Country: None (occurrence: None)
  Receive Date: 20080115
  Receipt Date: 20080111
  Transmission Date: 20080703
  Serious: Yes (Other)
  Sender: FDA-Public Use
  Company Number: B0499983A

PATIENT
  Age: 74 Year
  Sex: Female
  Weight: 50 kg

DRUGS (7)
  1. ZANTAC [Suspect]
     Dosage: 50MG SEE DOSAGE TEXT
     Route: 042
     Dates: start: 20071208, end: 20071211
  2. GABEXATE MESILATE [Concomitant]
     Dosage: 200MG PER DAY
     Route: 042
     Dates: start: 20071208, end: 20071208
  3. SOLDEM 3A [Concomitant]
     Route: 042
  4. CEFMETAZOLE SODIUM [Concomitant]
     Indication: CHOLANGITIS ACUTE
     Dosage: 2G PER DAY
     Route: 042
     Dates: start: 20071209, end: 20071216
  5. CEFMETAZOLE SODIUM [Concomitant]
     Dosage: 1G PER DAY
     Route: 042
     Dates: start: 20071208, end: 20071208
  6. GABEXATE MESILATE [Concomitant]
     Dosage: 100MG PER DAY
     Route: 042
     Dates: start: 20071209, end: 20071210
  7. PENTAZOCINE LACTATE [Concomitant]
     Indication: PAIN
     Dosage: 15MG PER DAY
     Dates: start: 20071208, end: 20071208

REACTIONS (5)
  - AGITATION [None]
  - DELIRIUM [None]
  - DISORIENTATION [None]
  - FALL [None]
  - SPEECH DISORDER [None]
